FAERS Safety Report 4677973-5 (Version None)
Quarter: 2005Q2

REPORT INFORMATION
  Report Type: 
  Country: None (occurrence: None)
  Receive Date: 20050531
  Receipt Date: 20050520
  Transmission Date: 20051028
  Serious: Yes (Disabling)
  Sender: FDA-Public Use
  Company Number: GB-BRISTOL-MYERS SQUIBB COMPANY-12977062

PATIENT
  Age: 54 Year
  Sex: Female
  Weight: 59 kg

DRUGS (8)
  1. TAXOL [Suspect]
     Indication: OVARIAN CANCER
     Route: 042
     Dates: start: 20041006, end: 20041006
  2. GEMCITABINE [Suspect]
     Indication: OVARIAN CANCER
     Route: 042
     Dates: start: 20041006, end: 20041006
  3. CARBOPLATIN [Concomitant]
  4. CHLORPHENIRAMINE MALEATE [Concomitant]
  5. DOMPERIDONE [Concomitant]
  6. DEXAMETHASONE [Concomitant]
     Route: 042
  7. RANITIDINE [Concomitant]
  8. GRANISETRON [Concomitant]
     Route: 042

REACTIONS (1)
  - LEUKOENCEPHALOPATHY [None]
